FAERS Safety Report 18257055 (Version 1)
Quarter: 2020Q3

REPORT INFORMATION
  Report Type: Spontaneous
  Country: US (occurrence: US)
  Receive Date: 20200911
  Receipt Date: 20200911
  Transmission Date: 20201103
  Serious: No
  Sender: FDA-Public Use
  Company Number: None

PATIENT
  Age: 21 Year
  Sex: Male

DRUGS (1)
  1. CLOZAPINE. [Suspect]
     Active Substance: CLOZAPINE
     Dates: start: 20200702, end: 20200721

REACTIONS (2)
  - C-reactive protein increased [None]
  - Idiosyncratic drug reaction [None]

NARRATIVE: CASE EVENT DATE: 20200707
